FAERS Safety Report 23399522 (Version 1)
Quarter: 2024Q1

REPORT INFORMATION
  Report Type: Spontaneous
  Country: US (occurrence: US)
  Receive Date: 20240113
  Receipt Date: 20240113
  Transmission Date: 20240410
  Serious: Yes (Hospitalization, Other)
  Sender: FDA-Public Use
  Company Number: US-GENMAB-2024-00009

PATIENT
  Sex: Male

DRUGS (2)
  1. EPKINLY [Suspect]
     Active Substance: EPCORITAMAB-BYSP
     Indication: Diffuse large B-cell lymphoma
     Dosage: 0.16 MILLIGRAM (DOSE 1)
     Route: 058
     Dates: start: 20231121
  2. EPKINLY [Suspect]
     Active Substance: EPCORITAMAB-BYSP
     Dosage: 0.8 MILLIGRAM (DOSE 2)
     Route: 065
     Dates: start: 20231130

REACTIONS (6)
  - Pneumonia [Unknown]
  - Chronic obstructive pulmonary disease [Unknown]
  - Rhinovirus infection [Unknown]
  - Inappropriate schedule of product administration [Unknown]
  - Intercepted product preparation error [Unknown]
  - Product dose omission issue [Unknown]
